FAERS Safety Report 11919687 (Version 4)
Quarter: 2016Q2

REPORT INFORMATION
  Report Type: Spontaneous
  Country: US (occurrence: US)
  Receive Date: 20160115
  Receipt Date: 20160420
  Transmission Date: 20160815
  Serious: Yes (Other)
  Sender: FDA-Public Use
  Company Number: US-PFIZER INC-2016015767

PATIENT
  Age: 47 Year
  Sex: Female

DRUGS (3)
  1. KEPPRA [Concomitant]
     Active Substance: LEVETIRACETAM
     Indication: SEIZURE
  2. XELJANZ [Suspect]
     Active Substance: TOFACITINIB CITRATE
     Dosage: 5 MG, 2X/DAY
     Route: 048
  3. XELJANZ [Suspect]
     Active Substance: TOFACITINIB CITRATE
     Indication: RHEUMATOID ARTHRITIS
     Dosage: 5 MG, 2X/DAY (1 TAB BID)
     Route: 048
     Dates: start: 201508

REACTIONS (14)
  - Dry throat [Unknown]
  - Hypoaesthesia [Recovered/Resolved]
  - Contusion [Unknown]
  - Haemorrhage [Unknown]
  - Headache [Unknown]
  - Peripheral swelling [Unknown]
  - Dyspepsia [Unknown]
  - Swelling [Unknown]
  - Influenza [Unknown]
  - Skin infection [Unknown]
  - Cough [Unknown]
  - Skin discolouration [Unknown]
  - Abdominal pain upper [Unknown]
  - Skin disorder [Unknown]

NARRATIVE: CASE EVENT DATE: 20151229
